FAERS Safety Report 6213638-6 (Version None)
Quarter: 2009Q2

REPORT INFORMATION
  Report Type: 
  Country: None (occurrence: None)
  Receive Date: 20090601
  Receipt Date: 20090518
  Transmission Date: 20091009
  Serious: Yes (Death)
  Sender: FDA-Public Use
  Company Number: FABR-1000812

PATIENT
  Age: 49 Year
  Sex: Male
  Weight: 71 kg

DRUGS (7)
  1. FABRAZYME [Suspect]
     Indication: FABRY'S DISEASE
     Dosage: 75 MG, Q2W, INTRAVENOUS
     Route: 042
     Dates: start: 20020501, end: 20090105
  2. PREDNISONE TAB [Concomitant]
  3. CALCIUM (CALCIUM) [Concomitant]
  4. ALFACALCIDOL (ALFACALCIDOL) [Concomitant]
  5. BISOPROLOL FUMARATE [Concomitant]
  6. ATORVASTATIN CALCIUM [Concomitant]
  7. ASPIRIN [Concomitant]

REACTIONS (8)
  - ANGINA PECTORIS [None]
  - CARDIAC ARREST [None]
  - CARDIAC FAILURE [None]
  - CORONARY ARTERY STENOSIS [None]
  - MYOCARDIAL INFARCTION [None]
  - PROCEDURAL COMPLICATION [None]
  - PULMONARY OEDEMA [None]
  - VASCULAR PROCEDURE COMPLICATION [None]
